FAERS Safety Report 4359809-5 (Version None)
Quarter: 2004Q2

REPORT INFORMATION
  Report Type: 
  Country: None (occurrence: None)
  Receive Date: 20040514
  Receipt Date: 20040429
  Transmission Date: 20050107
  Serious: Yes (Hospitalization, Other)
  Sender: FDA-Public Use
  Company Number: ATO-04-0374

PATIENT
  Age: 22 Year
  Sex: Male

DRUGS (2)
  1. TRISENOX [Suspect]
     Indication: ACUTE PROMYELOCYTIC LEUKAEMIA
     Dosage: UNK (0.15 MG/KG, UNK), IVI
     Route: 042
     Dates: start: 20030925, end: 20031028
  2. TRETINOIN [Suspect]

REACTIONS (7)
  - ATRIAL FIBRILLATION [None]
  - BRADYCARDIA [None]
  - SUPRAVENTRICULAR EXTRASYSTOLES [None]
  - SYNCOPE [None]
  - TACHYARRHYTHMIA [None]
  - TACHYCARDIA [None]
  - VENTRICULAR EXTRASYSTOLES [None]
